FAERS Safety Report 15320794 (Version 1)
Quarter: 2018Q3

REPORT INFORMATION
  Report Type: Spontaneous
  Country: VE (occurrence: VE)
  Receive Date: 20180827
  Receipt Date: 20180827
  Transmission Date: 20181010
  Serious: Yes (Other)
  Sender: FDA-Public Use
  Company Number: VE-ROCHE-2174239

PATIENT
  Sex: Female
  Weight: 1 kg

DRUGS (3)
  1. RANIBIZUMAB. [Suspect]
     Active Substance: RANIBIZUMAB
     Indication: RETINOPATHY OF PREMATURITY
     Dosage: 0.25 MG (0.025 ML), ONCE/SINGLE
     Route: 031
  2. POVIDONE?IODINE. [Concomitant]
     Active Substance: POVIDONE-IODINE
     Indication: PROPHYLAXIS
     Route: 047
  3. PROPARACAINE [Concomitant]
     Active Substance: PROPARACAINE
     Indication: ANAESTHESIA
     Route: 047

REACTIONS (3)
  - Retinopathy of prematurity [Recovering/Resolving]
  - Off label use [Unknown]
  - Product use in unapproved indication [Unknown]
